FAERS Safety Report 11542579 (Version 1)
Quarter: 2015Q3

REPORT INFORMATION
  Report Type: Spontaneous
  Country: US (occurrence: US)
  Receive Date: 20150923
  Receipt Date: 20150923
  Transmission Date: 20151125
  Serious: No
  Sender: FDA-Public Use
  Company Number: US-PFIZER INC-2015306933

PATIENT
  Sex: Female

DRUGS (2)
  1. AZELASTINE [Suspect]
     Active Substance: AZELASTINE
     Dosage: UNK
     Route: 045
  2. ADVIL CONGESTION RELIEF [Suspect]
     Active Substance: IBUPROFEN\PHENYLEPHRINE HYDROCHLORIDE
     Dosage: 2 DF, DAILY

REACTIONS (2)
  - Malaise [Unknown]
  - Intentional product misuse [Unknown]
